FAERS Safety Report 9616995 (Version 1)
Quarter: 2013Q4

REPORT INFORMATION
  Report Type: Spontaneous
  Country: US (occurrence: US)
  Receive Date: 20131011
  Receipt Date: 20131011
  Transmission Date: 20140711
  Serious: Yes (Other)
  Sender: FDA-Public Use
  Company Number: CHPA2013US015281

PATIENT
  Sex: Female

DRUGS (2)
  1. EXCEDRIN EXTRA STRENGTH [Suspect]
     Indication: PAIN
     Dosage: UNK, SEVERAL TIMES DAILY
     Route: 048
  2. EXCEDRIN EXTRA STRENGTH [Suspect]
     Indication: OFF LABEL USE
     Dosage: UNK, PRN
     Route: 048

REACTIONS (7)
  - Haemorrhage [Recovered/Resolved]
  - Multiple fractures [Recovered/Resolved]
  - Carpal tunnel syndrome [Unknown]
  - Fall [Recovered/Resolved]
  - Nail injury [Recovered/Resolved]
  - Pain [Unknown]
  - Incorrect drug administration duration [Unknown]
